FAERS Safety Report 5366725-9 (Version None)
Quarter: 2007Q2

REPORT INFORMATION
  Report Type: 
  Country: None (occurrence: None)
  Receive Date: 20070622
  Receipt Date: 20060908
  Transmission Date: 20071010
  Serious: No
  Sender: FDA-Public Use
  Company Number: US-ASTRAZENECA-2006UW15048

PATIENT
  Age: 63 Year
  Sex: Female
  Weight: 70.3 kg

DRUGS (4)
  1. RHINOCORT [Suspect]
     Indication: SINUS CONGESTION
     Dosage: ONE SPRAY
     Route: 045
     Dates: start: 20060711
  2. VYTORIN [Concomitant]
  3. ERYTHROMYCIN [Concomitant]
  4. AMBIEN [Concomitant]

REACTIONS (1)
  - INSOMNIA [None]
